FAERS Safety Report 9884211 (Version 1)
Quarter: 2014Q1

REPORT INFORMATION
  Report Type: Spontaneous
  Country: US (occurrence: None)
  Receive Date: 20140207
  Receipt Date: 20140207
  Transmission Date: 20141002
  Serious: Yes (Other)
  Sender: FDA-Public Use
  Company Number: None

PATIENT
  Age: 58 Year
  Sex: Female
  Weight: 87.09 kg

DRUGS (1)
  1. CIPROFLOXACIN [Suspect]
     Indication: KIDNEY INFECTION
     Dates: start: 20130722, end: 20130726

REACTIONS (5)
  - Suicidal ideation [None]
  - Hostility [None]
  - Restlessness [None]
  - Screaming [None]
  - Thinking abnormal [None]
